FAERS Safety Report 22528092 (Version 1)
Quarter: 2023Q2

REPORT INFORMATION
  Report Type: Spontaneous
  Country: PL (occurrence: PL)
  Receive Date: 20230607
  Receipt Date: 20230607
  Transmission Date: 20230722
  Serious: Yes (Hospitalization, Other)
  Sender: FDA-Public Use
  Company Number: PL-AMGEN-POLSP2023094392

PATIENT
  Age: 62 Year
  Sex: Female

DRUGS (4)
  1. BEVACIZUMAB [Suspect]
     Active Substance: BEVACIZUMAB
     Indication: Hepatocellular carcinoma
     Dosage: 1050 MILLIGRAM 33 COURSES (PFS 22 MONTHS UNTIL /MAY/2020), 74 CYLES
     Route: 040
     Dates: start: 20180627
  2. ATEZOLIZUMAB [Suspect]
     Active Substance: ATEZOLIZUMAB
     Indication: Hepatocellular carcinoma
     Dosage: 1200 MILLIGRAM 33 COURSES (PFS 22 MONTHS UNTIL /MAY/2020), 74 CYLES
     Route: 040
     Dates: start: 20180627
  3. CABOZANTINIB [Suspect]
     Active Substance: CABOZANTINIB
     Indication: Hepatocellular carcinoma
     Dosage: 40 MILLIGRAM SECOND COURSE, 1X40MG
     Route: 048
  4. CABOZANTINIB [Suspect]
     Active Substance: CABOZANTINIB
     Dosage: 60 MILLIGRAM FIRST COURSE, 1X60MG
     Route: 048
     Dates: start: 20221128

REACTIONS (7)
  - Hypothyroidism [Unknown]
  - Diarrhoea [Unknown]
  - Asthenia [Unknown]
  - Hepatocellular carcinoma [Unknown]
  - Alanine aminotransferase increased [Unknown]
  - Proteinuria [Unknown]
  - Off label use [Unknown]

NARRATIVE: CASE EVENT DATE: 20220101
